FAERS Safety Report 7426409-X (Version None)
Quarter: 2011Q2

REPORT INFORMATION
  Report Type: 
  Country: None (occurrence: None)
  Receive Date: 20110420
  Receipt Date: 20110412
  Transmission Date: 20111010
  Serious: Yes (Other)
  Sender: FDA-Public Use
  Company Number: US-PFIZER INC-2009266947

PATIENT
  Sex: Female

DRUGS (15)
  1. PROVERA [Suspect]
     Indication: HORMONE REPLACEMENT THERAPY
     Dosage: 2.5 MG, UNK
     Route: 048
     Dates: start: 19951001, end: 19951101
  2. ESTRATEST [Suspect]
     Indication: HORMONE REPLACEMENT THERAPY
  3. MEDROXYPROGESTERONE ACETATE [Suspect]
  4. PROVERA [Suspect]
     Dosage: 10 MG, UNK
     Route: 048
     Dates: start: 19980101
  5. PREMPRO [Suspect]
     Indication: HORMONE REPLACEMENT THERAPY
     Dosage: UNK
     Dates: start: 19950801, end: 19951001
  6. ESTRACE [Suspect]
     Indication: HORMONE REPLACEMENT THERAPY
  7. PROVERA [Suspect]
     Dosage: 2.5 MG, UNK
     Route: 048
     Dates: start: 19960801, end: 19980701
  8. MEDROXYPROGESTERONE ACETATE [Suspect]
     Indication: HORMONE REPLACEMENT THERAPY
     Dosage: UNK
  9. PREMARIN [Suspect]
     Dosage: 2.5 MG, UNK
     Dates: start: 19960101
  10. PREMARIN [Suspect]
     Dosage: UNK
  11. PREMPHASE (PREMARIN;CYCRIN 14/14) [Suspect]
     Indication: HORMONE REPLACEMENT THERAPY
     Dosage: UNK
     Dates: start: 19951101, end: 19960801
  12. CYCRIN [Suspect]
     Dosage: 10 MG, UNK
  13. PREMARIN [Suspect]
     Indication: HORMONE REPLACEMENT THERAPY
     Dosage: 1.25 MG, UNK
     Dates: start: 19951001, end: 19951101
  14. CYCRIN [Suspect]
     Indication: HORMONE REPLACEMENT THERAPY
     Dosage: 2.5 MG, UNK
  15. PREMARIN [Suspect]
     Dosage: 1.25 MG, UNK
     Dates: start: 19960701, end: 19980701

REACTIONS (5)
  - BREAST PAIN [None]
  - RADIATION INJURY [None]
  - BREAST CANCER FEMALE [None]
  - POSTMENOPAUSAL HAEMORRHAGE [None]
  - BREAST DISCOMFORT [None]
